FAERS Safety Report 15790814 (Version 1)
Quarter: 2019Q1

REPORT INFORMATION
  Report Type: Spontaneous
  Country: US (occurrence: US)
  Receive Date: 20190104
  Receipt Date: 20190104
  Transmission Date: 20190417
  Serious: Yes (Hospitalization)
  Sender: FDA-Public Use
  Company Number: None

PATIENT
  Age: 64 Year
  Sex: Female

DRUGS (3)
  1. AMLODIPINE [Concomitant]
     Active Substance: AMLODIPINE BESYLATE
  2. HYDROCO / APAP [Concomitant]
  3. XELJANZ [Suspect]
     Active Substance: TOFACITINIB CITRATE
     Indication: PSORIATIC ARTHROPATHY
     Route: 048
     Dates: start: 20181212

REACTIONS (9)
  - Epistaxis [None]
  - Asthenia [None]
  - Cold sweat [None]
  - Respiratory tract congestion [None]
  - Feeling abnormal [None]
  - Fatigue [None]
  - Nausea [None]
  - Headache [None]
  - Lethargy [None]

NARRATIVE: CASE EVENT DATE: 20181224
